FAERS Safety Report 4450232-1 (Version None)
Quarter: 2004Q3

REPORT INFORMATION
  Report Type: 
  Country: None (occurrence: None)
  Receive Date: 20040914
  Receipt Date: 20040906
  Transmission Date: 20050211
  Serious: Yes (Hospitalization)
  Sender: FDA-Public Use
  Company Number: 2004196654JP

PATIENT
  Age: 15 Year
  Sex: Female

DRUGS (5)
  1. ETOPOSIDE [Suspect]
     Indication: LYMPHOMA
  2. CYCLOPHOSPHAMIDE [Suspect]
     Indication: LYMPHOMA
  3. METHOTREXATE [Suspect]
     Indication: LYMPHOMA
  4. DOXORUBICIN HYDROCHLORIDE [Suspect]
  5. CYTOSAR-U [Suspect]
     Indication: LYMPHOMA

REACTIONS (8)
  - ANAPHYLACTIC REACTION [None]
  - BONE SARCOMA [None]
  - CARDIAC FAILURE [None]
  - CARDIOTOXICITY [None]
  - DRUG TOXICITY [None]
  - HEPATOCELLULAR DAMAGE [None]
  - NEPHROPATHY [None]
  - PULMONARY OEDEMA [None]
